FAERS Safety Report 5819332-5 (Version None)
Quarter: 2008Q3

REPORT INFORMATION
  Report Type: 
  Country: None (occurrence: None)
  Receive Date: 20080723
  Receipt Date: 20080708
  Transmission Date: 20090109
  Serious: Yes (Other)
  Sender: FDA-Public Use
  Company Number: ES-ASTRAZENECA-2008AC01725

PATIENT
  Age: 68 Year
  Sex: Male

DRUGS (7)
  1. NEXIUM [Suspect]
     Indication: DYSPEPSIA
     Route: 048
     Dates: start: 20080408, end: 20080411
  2. LOSARTAN POTASSIUM [Concomitant]
     Route: 048
     Dates: start: 20080108
  3. EUTIROX [Concomitant]
     Route: 048
     Dates: start: 20070115
  4. PERMIXON [Concomitant]
     Route: 048
     Dates: start: 20071106
  5. PLAVIX [Concomitant]
     Route: 048
     Dates: start: 20040102
  6. ZOCOR [Concomitant]
     Route: 048
     Dates: start: 20010518
  7. ALLOPURINOL [Concomitant]
     Route: 048
     Dates: start: 20010518

REACTIONS (4)
  - CHEST PAIN [None]
  - DIZZINESS [None]
  - FEELING JITTERY [None]
  - TREMOR [None]
